FAERS Safety Report 23846053 (Version 2)
Quarter: 2024Q2

REPORT INFORMATION
  Report Type: Other
  Country: US (occurrence: US)
  Receive Date: 20240512
  Receipt Date: 20240512
  Transmission Date: 20240716
  Serious: No
  Sender: FDA-Public Use
  Company Number: US-TRAVERE-2024TVT00330

PATIENT
  Sex: Male

DRUGS (9)
  1. FILSPARI [Suspect]
     Active Substance: SPARSENTAN
     Indication: IgA nephropathy
     Route: 048
     Dates: start: 202401
  2. PEPTO-BISMOL [Concomitant]
     Active Substance: BISMUTH SUBSALICYLATE
  3. VITAMIN D2 [Concomitant]
     Active Substance: ERGOCALCIFEROL
  4. FISH OIL [Concomitant]
     Active Substance: FISH OIL
  5. VITAMIN B12 [Concomitant]
     Active Substance: CYANOCOBALAMIN
  6. LORATADINE [Concomitant]
     Active Substance: LORATADINE
  7. ALLOPURINOL [Concomitant]
     Active Substance: ALLOPURINOL
  8. SODIUM BICARBONATE [Concomitant]
     Active Substance: SODIUM BICARBONATE
  9. AMLODIPINE BESYLATE [Concomitant]
     Active Substance: AMLODIPINE BESYLATE

REACTIONS (4)
  - Sinusitis [Unknown]
  - Photophobia [Unknown]
  - Ocular hyperaemia [Unknown]
  - Nasopharyngitis [Unknown]
